FAERS Safety Report 24412121 (Version 1)
Quarter: 2024Q4

REPORT INFORMATION
  Report Type: Spontaneous
  Country: US (occurrence: None)
  Receive Date: 20241007
  Receipt Date: 20241007
  Transmission Date: 20250115
  Serious: Yes (Other)
  Sender: Public
  Company Number: None

PATIENT
  Age: 7 Year
  Sex: Male
  Weight: 27.8 kg

DRUGS (1)
  1. DOTAREM [Suspect]
     Active Substance: GADOTERATE MEGLUMINE
     Route: 040

REACTIONS (2)
  - Injection site swelling [None]
  - Urticaria [None]

NARRATIVE: CASE EVENT DATE: 20241004
